FAERS Safety Report 23223692 (Version 3)
Quarter: 2024Q3

REPORT INFORMATION
  Report Type: Report from Study
  Country: IT (occurrence: IT)
  Receive Date: 20231124
  Receipt Date: 20240710
  Transmission Date: 20241016
  Serious: Yes (Other)
  Sender: ROCHE
  Company Number: IT-ROCHE-3458650

PATIENT
  Age: 54 Year
  Sex: Female

DRUGS (5)
  1. GLOFITAMAB [Suspect]
     Active Substance: GLOFITAMAB
     Indication: Diffuse large B-cell lymphoma
     Dosage: ON 18/SEP/2023, LAST GLOFITAMAB 10MG WAS RECEIVED.
     Route: 042
     Dates: start: 20230911, end: 20240304
  2. GLOFITAMAB [Suspect]
     Active Substance: GLOFITAMAB
     Indication: Richter^s syndrome
  3. OBINUTUZUMAB [Suspect]
     Active Substance: OBINUTUZUMAB
     Indication: Diffuse large B-cell lymphoma
     Route: 042
     Dates: start: 20230904
  4. OBINUTUZUMAB [Suspect]
     Active Substance: OBINUTUZUMAB
     Indication: Richter^s syndrome
  5. NITROFURANTOIN [Concomitant]
     Active Substance: NITROFURANTOIN

REACTIONS (5)
  - Interstitial lung disease [Recovered/Resolved]
  - Febrile neutropenia [Unknown]
  - Pyrexia [Unknown]
  - Cytokine release syndrome [Recovered/Resolved]
  - Cytomegalovirus infection reactivation [Unknown]

NARRATIVE: CASE EVENT DATE: 20230913
